FAERS Safety Report 12211608 (Version 1)
Quarter: 2016Q1

REPORT INFORMATION
  Report Type: Spontaneous
  Country: None (occurrence: IT)
  Receive Date: 20160325
  Receipt Date: 20160325
  Transmission Date: 20160526
  Serious: Yes (Hospitalization)
  Sender: FDA-Public Use
  Company Number: IT-MEDAC PHARMA, INC.-1049725

PATIENT
  Age: 56 Year
  Sex: Male

DRUGS (10)
  1. PARIET [Concomitant]
     Active Substance: RABEPRAZOLE SODIUM
  2. DIAZEPAM. [Concomitant]
     Active Substance: DIAZEPAM
  3. REMSIMA [Suspect]
     Active Substance: INFLIXIMAB
     Route: 042
     Dates: start: 20120501, end: 20160118
  4. REUMAFLEX 50 MG/ML (METHOTREXATE) [Suspect]
     Active Substance: METHOTREXATE
     Indication: SPONDYLITIS
     Route: 058
     Dates: start: 20120501, end: 20160229
  5. FOLIC ACID. [Concomitant]
     Active Substance: FOLIC ACID
  6. PYRIDOXINE HYDROCHLORIDE. [Concomitant]
     Active Substance: PYRIDOXINE HYDROCHLORIDE
  7. FENOFIBRATE. [Concomitant]
     Active Substance: FENOFIBRATE
  8. ALLOPURINOL. [Concomitant]
     Active Substance: ALLOPURINOL
  9. TENORETIC [Concomitant]
     Active Substance: ATENOLOL\CHLORTHALIDONE
  10. PALEXIA [Concomitant]
     Active Substance: TAPENTADOL HYDROCHLORIDE

REACTIONS (2)
  - Intracranial pressure increased [Not Recovered/Not Resolved]
  - Brain abscess [Not Recovered/Not Resolved]

NARRATIVE: CASE EVENT DATE: 20160301
